FAERS Safety Report 15344949 (Version 1)
Quarter: 2018Q3

REPORT INFORMATION
  Report Type: Report from Study
  Country: US (occurrence: US)
  Receive Date: 20180903
  Receipt Date: 20180903
  Transmission Date: 20181010
  Serious: Yes (Other)
  Sender: FDA-Public Use
  Company Number: US-TEVA-2018-US-948760

PATIENT
  Sex: Female

DRUGS (1)
  1. COPAXONE [Suspect]
     Active Substance: GLATIRAMER ACETATE
     Indication: MULTIPLE SCLEROSIS
     Route: 058
     Dates: start: 20170919, end: 20180523

REACTIONS (7)
  - Pharyngeal oedema [Unknown]
  - Hypersensitivity [Unknown]
  - Mass [Unknown]
  - Lip swelling [Unknown]
  - Swollen tongue [Unknown]
  - Dyspnoea [Unknown]
  - Angioedema [Unknown]
